FAERS Safety Report 4360705-8 (Version None)
Quarter: 2004Q2

REPORT INFORMATION
  Report Type: 
  Country: None (occurrence: None)
  Receive Date: 20040514
  Receipt Date: 20040504
  Transmission Date: 20050107
  Serious: Yes (Hospitalization, Other)
  Sender: FDA-Public Use
  Company Number: 2004-05-0317

PATIENT
  Age: 53 Year
  Sex: Male

DRUGS (1)
  1. FLUTAMIDE [Suspect]
     Indication: PROSTATE CANCER STAGE III
     Dosage: ORAL
     Route: 048

REACTIONS (8)
  - DIARRHOEA [None]
  - GASTROINTESTINAL NECROSIS [None]
  - GASTROINTESTINAL OEDEMA [None]
  - HAEMORRHOIDS [None]
  - INTESTINAL ISCHAEMIA [None]
  - INTUSSUSCEPTION [None]
  - LARGE INTESTINAL HAEMORRHAGE [None]
  - PHLEBITIS [None]
